FAERS Safety Report 9362816 (Version 1)
Quarter: 2013Q2

REPORT INFORMATION
  Report Type: Spontaneous
  Country: US (occurrence: US)
  Receive Date: 20130624
  Receipt Date: 20130624
  Transmission Date: 20140414
  Serious: No
  Sender: FDA-Public Use
  Company Number: US-ASTRAZENECA-2013SE42856

PATIENT
  Sex: Female

DRUGS (2)
  1. SYMBICORT [Suspect]
     Indication: CHRONIC OBSTRUCTIVE PULMONARY DISEASE
     Dosage: 160/4.5MCG, SOMETIMES USE ONE PUFF PER DAY
     Route: 055
  2. HEART MEDICATIONS [Concomitant]
     Indication: CARDIAC DISORDER

REACTIONS (3)
  - Dyspnoea [Unknown]
  - Intentional drug misuse [Unknown]
  - Intentional drug misuse [Unknown]
